FAERS Safety Report 23230190 (Version 1)
Quarter: 2023Q4

REPORT INFORMATION
  Report Type: Spontaneous
  Country: US (occurrence: None)
  Receive Date: 20231122
  Receipt Date: 20231122
  Transmission Date: 20240110
  Serious: Yes (Hospitalization)
  Sender: FDA-Public Use
  Company Number: None

PATIENT
  Age: 55 Year
  Sex: Male
  Weight: 57.6 kg

DRUGS (1)
  1. KYMRIAH [Suspect]
     Active Substance: TISAGENLECLEUCEL
     Indication: Diffuse large B-cell lymphoma
     Dosage: OTHER FREQUENCY : ONCE;?
     Route: 042
     Dates: start: 20231011, end: 20231011

REACTIONS (9)
  - Respiratory failure [None]
  - Pneumonia [None]
  - Cytokine release syndrome [None]
  - Pulmonary mass [None]
  - Sialoadenitis [None]
  - Parainfluenzae virus infection [None]
  - Lymphoma [None]
  - Fungal infection [None]
  - Drug level below therapeutic [None]

NARRATIVE: CASE EVENT DATE: 20231013
